FAERS Safety Report 5649584-6 (Version None)
Quarter: 2008Q1

REPORT INFORMATION
  Report Type: 
  Country: None (occurrence: None)
  Receive Date: 20080131
  Receipt Date: 20071113
  Transmission Date: 20080703
  Serious: No
  Sender: FDA-Public Use
  Company Number: US200711003277

PATIENT
  Age: 65 Year
  Sex: Female
  Weight: 64.9 kg

DRUGS (6)
  1. BYETTA(EXENATIDE) PEN, DISPOSBLE [Suspect]
     Indication: TYPE 2 DIABETES MELLITUS
     Dosage: 5 UG, 2/D, SUBCUTANEOUS, 10 UG
     Route: 058
     Dates: start: 20070101, end: 20070101
  2. BYETTA(EXENATIDE) PEN, DISPOSBLE [Suspect]
     Indication: TYPE 2 DIABETES MELLITUS
     Dosage: 5 UG, 2/D, SUBCUTANEOUS, 10 UG
     Route: 058
     Dates: start: 20070101, end: 20071112
  3. BYETTA(EXENATIDE) PEN, DISPOSBLE [Suspect]
     Indication: TYPE 2 DIABETES MELLITUS
     Dosage: 5 UG, 2/D, SUBCUTANEOUS; 10 UG
     Route: 058
     Dates: start: 20070101, end: 20070101
  4. BYETTA(EXENATIDE) PEN, DISPOSBLE [Suspect]
     Indication: TYPE 2 DIABETES MELLITUS
     Dosage: 5 UG, 2/D, SUBCUTANEOUS; 10 UG
     Route: 058
     Dates: start: 20070101, end: 20071112
  5. EXENATIDE PEN, DISPOSABLE DEVICE (EXENATIDE PEN, DISPOSABLE) [Concomitant]
  6. METFORMIN HCL [Concomitant]

REACTIONS (8)
  - ABDOMINAL PAIN [None]
  - BLOOD GLUCOSE INCREASED [None]
  - BRONCHITIS [None]
  - DIARRHOEA [None]
  - DYSPEPSIA [None]
  - NAUSEA [None]
  - VOMITING [None]
  - WEIGHT DECREASED [None]
